FAERS Safety Report 19549683 (Version 1)
Quarter: 2021Q3

REPORT INFORMATION
  Report Type: Spontaneous
  Country: US (occurrence: US)
  Receive Date: 20210714
  Receipt Date: 20210714
  Transmission Date: 20211014
  Serious: Yes (Other)
  Sender: FDA-Public Use
  Company Number: US-CELGENEUS-USA-20210702072

PATIENT
  Age: 57 Year
  Sex: Male

DRUGS (1)
  1. REVLIMID [Suspect]
     Active Substance: LENALIDOMIDE
     Indication: MYELODYSPLASTIC SYNDROME
     Dosage: 10 MILLIGRAM
     Route: 048
     Dates: start: 202106

REACTIONS (7)
  - Atrial fibrillation [Unknown]
  - Insomnia [Unknown]
  - Peripheral swelling [Unknown]
  - Blood glucose increased [Unknown]
  - Hypophagia [Unknown]
  - Abdominal pain upper [Unknown]
  - Secretion discharge [Unknown]

NARRATIVE: CASE EVENT DATE: 202107
